FAERS Safety Report 25453451 (Version 1)
Quarter: 2025Q2

REPORT INFORMATION
  Report Type: Report from Study
  Country: BR (occurrence: BR)
  Receive Date: 20250619
  Receipt Date: 20250619
  Transmission Date: 20250716
  Serious: Yes (Other)
  Sender: JOHNSON AND JOHNSON
  Company Number: BR-JNJFOC-20240382713

PATIENT
  Age: 73 Year
  Sex: Male
  Weight: 98 kg

DRUGS (3)
  1. INFLIXIMAB [Suspect]
     Active Substance: INFLIXIMAB
     Indication: Product used for unknown indication
     Route: 041
  2. REMICADE [Suspect]
     Active Substance: INFLIXIMAB
     Indication: Crohn^s disease
     Dosage: 5 VIALS
     Route: 041
  3. MESALAMINE [Suspect]
     Active Substance: MESALAMINE

REACTIONS (7)
  - Colitis ulcerative [Unknown]
  - Herpes zoster [Not Recovered/Not Resolved]
  - Decreased immune responsiveness [Unknown]
  - Ear infection [Recovered/Resolved]
  - Drug ineffective [Unknown]
  - Memory impairment [Unknown]
  - Malaise [Unknown]
